FAERS Safety Report 17269186 (Version 1)
Quarter: 2020Q1

REPORT INFORMATION
  Report Type: Spontaneous
  Country: US (occurrence: US)
  Receive Date: 20200114
  Receipt Date: 20200114
  Transmission Date: 20200409
  Serious: Yes (Hospitalization)
  Sender: FDA-Public Use
  Company Number: None

PATIENT
  Age: 60 Year
  Sex: Female

DRUGS (8)
  1. ENBREL [Suspect]
     Active Substance: ETANERCEPT
     Dosage: ?          OTHER FREQUENCY:ONCE A WEEK;?
     Route: 058
     Dates: start: 20190506
  2. LISINOPRIL TAB 10MG [Concomitant]
     Dates: start: 20190909
  3. HYDROXYCHLOR TAB 200MG [Concomitant]
     Active Substance: HYDROXYCHLOROQUINE
     Dates: start: 20190909
  4. PRESNISONE PAK 10MG [Concomitant]
     Dates: start: 20200108
  5. CYCLOBENZAPR TAB 5MG [Concomitant]
     Dates: start: 20200108
  6. ATORVASTATIN TAB 40MG [Concomitant]
     Dates: start: 20190909
  7. LEVOTHYROXIN TAB 112MCG [Concomitant]
     Dates: start: 20190919
  8. OXYCOD/APAP TAB 5-325MG [Concomitant]
     Dates: start: 20200103

REACTIONS (3)
  - Inflammation [None]
  - Back pain [None]
  - Intervertebral disc degeneration [None]

NARRATIVE: CASE EVENT DATE: 20200113
